FAERS Safety Report 5528991-6 (Version None)
Quarter: 2007Q4

REPORT INFORMATION
  Report Type: 
  Country: None (occurrence: None)
  Receive Date: 20071109
  Receipt Date: 20070629
  Transmission Date: 20080405
  Serious: Yes (Other)
  Sender: FDA-Public Use
  Company Number: PHEH2005US10372

PATIENT
  Age: 58 Year
  Sex: Female
  Weight: 62.6 kg

DRUGS (4)
  1. ESTRADERM [Suspect]
     Indication: MENOPAUSAL SYMPTOMS
     Dosage: 0.05 MG, TRANSDERMAL
     Route: 062
     Dates: start: 19970101, end: 19990101
  2. OGEN [Suspect]
     Indication: MENOPAUSAL SYMPTOMS
     Dosage: 0.625 MG, ORAL
     Route: 048
     Dates: start: 19850101, end: 19960101
  3. PROVERA [Suspect]
     Indication: MENOPAUSAL SYMPTOMS
     Dosage: 2.5 MG, ORAL
     Route: 048
     Dates: start: 19850101, end: 19980101
  4. PREMPRO [Suspect]
     Indication: MENOPAUSAL SYMPTOMS
     Dosage: 0.625/2.5 MG, ORAL
     Route: 048
     Dates: start: 19960101, end: 19970101

REACTIONS (22)
  - ANXIETY [None]
  - BIOPSY BREAST [None]
  - BREAST CANCER [None]
  - BREAST CANCER STAGE I [None]
  - BREAST MASS [None]
  - DIVERTICULUM [None]
  - GASTROOESOPHAGEAL REFLUX DISEASE [None]
  - GRANULOMA [None]
  - HOT FLUSH [None]
  - HYPERPARATHYROIDISM SECONDARY [None]
  - HYPERTENSION [None]
  - INJURY [None]
  - MALABSORPTION [None]
  - MALIGNANT BREAST LUMP REMOVAL [None]
  - METRORRHAGIA [None]
  - OESTROGEN RECEPTOR ASSAY POSITIVE [None]
  - OSTEOPOROSIS [None]
  - PAIN [None]
  - PROGESTERONE RECEPTOR ASSAY POSITIVE [None]
  - PULMONARY CALCIFICATION [None]
  - RADIOTHERAPY [None]
  - UTERINE HAEMORRHAGE [None]
